FAERS Safety Report 9392411 (Version 1)
Quarter: 2013Q3

REPORT INFORMATION
  Report Type: Spontaneous
  Country: US (occurrence: None)
  Receive Date: 20130708
  Receipt Date: 20130708
  Transmission Date: 20140515
  Serious: Yes (Other)
  Sender: FDA-Public Use
  Company Number: None

PATIENT
  Sex: Female
  Weight: 62.6 kg

DRUGS (11)
  1. LEVOTHYROXINE SODIUM [Suspect]
     Indication: HYPOTHYROIDISM
     Route: 048
     Dates: start: 201107
  2. EEMT (HORMONES) [Concomitant]
  3. FUROSEMIDE(LASIZ) [Concomitant]
  4. IBUPROFEN [Concomitant]
  5. ALPRAZOLAM [Concomitant]
  6. K-TABS [Concomitant]
  7. SERTRALINE HCL BACOFEN [Concomitant]
  8. DORLAMIDE/BRMONIDINE/TOMOLO (EYE DROPS,3) [Concomitant]
  9. MULTIPLE VITAMINS [Concomitant]
  10. CALCIUM [Concomitant]
  11. VITAMIN B-COMPLEX [Concomitant]

REACTIONS (6)
  - Fatigue [None]
  - Pain [None]
  - Pain in extremity [None]
  - Abdominal distension [None]
  - Hyperthyroidism [None]
  - Product quality issue [None]
